FAERS Safety Report 11515357 (Version 6)
Quarter: 2016Q2

REPORT INFORMATION
  Report Type: Spontaneous
  Country: BR (occurrence: BR)
  Receive Date: 20150916
  Receipt Date: 20160504
  Transmission Date: 20160815
  Serious: Yes (Other)
  Sender: FDA-Public Use
  Company Number: BR-JNJFOC-20150911159

PATIENT
  Age: 47 Year
  Sex: Female
  Weight: 58 kg

DRUGS (5)
  1. CERAZETTE [Concomitant]
     Active Substance: DESOGESTREL
     Indication: CONTRACEPTION
     Route: 065
  2. TORLOS [Concomitant]
     Indication: HYPERTENSION
     Route: 065
  3. SIMPONI [Suspect]
     Active Substance: GOLIMUMAB
     Indication: RHEUMATOID ARTHRITIS
     Route: 058
     Dates: start: 20150617
  4. SIMPONI [Suspect]
     Active Substance: GOLIMUMAB
     Indication: RHEUMATOID ARTHRITIS
     Route: 058
     Dates: start: 20150815, end: 20150911
  5. PURAN [Concomitant]
     Active Substance: LEVOTHYROXINE SODIUM
     Indication: HYPOTHYROIDISM
     Route: 065

REACTIONS (9)
  - Musculoskeletal stiffness [Recovered/Resolved]
  - Weight increased [Not Recovered/Not Resolved]
  - Nervousness [Recovered/Resolved]
  - Discomfort [Recovered/Resolved]
  - Peripheral swelling [Unknown]
  - Drug ineffective [Unknown]
  - Mouth haemorrhage [Unknown]
  - Dental implantation [Recovering/Resolving]
  - Pain [Not Recovered/Not Resolved]

NARRATIVE: CASE EVENT DATE: 2015
